FAERS Safety Report 4375456-3 (Version None)
Quarter: 2004Q2

REPORT INFORMATION
  Report Type: 
  Country: None (occurrence: None)
  Receive Date: 20040607
  Receipt Date: 20040526
  Transmission Date: 20050107
  Serious: Yes (Hospitalization)
  Sender: FDA-Public Use
  Company Number: 2004035388

PATIENT
  Age: 86 Year
  Sex: Male

DRUGS (1)
  1. TIKOSYN [Suspect]
     Indication: ILL-DEFINED DISORDER
     Dosage: DURATION: ^ONE AND A HALF YEARS^

REACTIONS (2)
  - OSTEOARTHRITIS [None]
  - PAIN [None]
